FAERS Safety Report 4708133-7 (Version None)
Quarter: 2005Q3

REPORT INFORMATION
  Report Type: 
  Country: None (occurrence: None)
  Receive Date: 20050705
  Receipt Date: 20050705
  Transmission Date: 20060218
  Serious: No
  Sender: FDA-Public Use
  Company Number: None

PATIENT
  Sex: Female

DRUGS (1)
  1. DEPO-MEDROL [Suspect]
     Dosage: 200 MG INTRAVENOUS
     Route: 042
     Dates: start: 20040505, end: 20040505

REACTIONS (3)
  - BLOOD PRESSURE DECREASED [None]
  - DRUG ADMINISTRATION ERROR [None]
  - MEDICATION ERROR [None]
